FAERS Safety Report 6850782-4 (Version None)
Quarter: 2010Q3

REPORT INFORMATION
  Report Type: 
  Country: None (occurrence: None)
  Receive Date: 20100716
  Receipt Date: 20071022
  Transmission Date: 20110219
  Serious: No
  Sender: FDA-Public Use
  Company Number: US-PFIZER INC-2007089889

PATIENT
  Sex: Female

DRUGS (9)
  1. CHANTIX [Suspect]
     Indication: SMOKING CESSATION THERAPY
     Dates: start: 20070501
  2. ACETAMINOPHEN [Concomitant]
  3. NIACIN [Concomitant]
  4. VITAMIN C [Concomitant]
  5. VITAMIN B [Concomitant]
  6. FISH OIL [Concomitant]
  7. UBIDECARENONE [Concomitant]
  8. LISINOPRIL [Concomitant]
  9. SIMVASTATIN [Concomitant]

REACTIONS (6)
  - ABNORMAL DREAMS [None]
  - BLOOD PRESSURE INCREASED [None]
  - BURNING SENSATION [None]
  - ERYTHEMA [None]
  - FEELING HOT [None]
  - HEART RATE INCREASED [None]
